FAERS Safety Report 10246103 (Version 1)
Quarter: 2014Q2

REPORT INFORMATION
  Report Type: Spontaneous
  Country: US (occurrence: None)
  Receive Date: 20140617
  Receipt Date: 20140617
  Transmission Date: 20141212
  Serious: Yes (Other)
  Sender: FDA-Public Use
  Company Number: None

PATIENT
  Age: 28 Year
  Sex: Female
  Weight: 88 kg

DRUGS (1)
  1. TOPAMAX [Suspect]
     Indication: MIGRAINE
     Route: 048

REACTIONS (5)
  - Disturbance in attention [None]
  - Visual acuity reduced [None]
  - Retinal neovascularisation [None]
  - Visual acuity reduced [None]
  - Visual impairment [None]
